FAERS Safety Report 8496837-2 (Version None)
Quarter: 2012Q3

REPORT INFORMATION
  Report Type: 
  Country: None (occurrence: None)
  Receive Date: 20120709
  Receipt Date: 20120628
  Transmission Date: 20120928
  Serious: Yes (Life-Threatening, Hospitalization, Other)
  Sender: FDA-Public Use
  Company Number: FR-BAXTER-2012BAX009969

PATIENT
  Sex: Female
  Weight: 51.5 kg

DRUGS (19)
  1. IFOSFAMIDE [Suspect]
     Indication: SARCOMA METASTATIC
     Dosage: 6 G/M2
     Route: 042
     Dates: start: 20100716
  2. DOXORUBICIN HCL [Suspect]
     Indication: SARCOMA METASTATIC
     Dosage: 92 MG
     Route: 042
     Dates: start: 20100716
  3. DACTINOMYCIN [Suspect]
     Indication: SARCOMA METASTATIC
     Dosage: 2 MG
     Route: 042
     Dates: start: 20100716
  4. MUTESA                             /00858001/ [Concomitant]
     Dosage: 6 TS
     Route: 065
     Dates: start: 20100720, end: 20100724
  5. LASIX [Concomitant]
     Route: 065
     Dates: start: 20100716, end: 20100718
  6. ACETAMINOPHEN [Concomitant]
     Route: 065
     Dates: start: 20100717, end: 20100717
  7. DOXORUBICIN HCL [Suspect]
     Dosage: 30 MG/M2
     Route: 042
  8. NICARDIPINE HCL [Concomitant]
     Route: 065
     Dates: start: 20100716, end: 20110126
  9. SUFENTANIL CITRATE [Concomitant]
     Route: 065
     Dates: start: 20100705, end: 20100728
  10. XANAX [Concomitant]
     Route: 065
     Dates: start: 20100630
  11. ACETAMINOPHEN [Concomitant]
     Route: 065
     Dates: start: 20100706, end: 20100719
  12. IFOSFAMIDE [Suspect]
     Dosage: 6 G,2
     Route: 042
     Dates: start: 20100912
  13. PLITICAN [Concomitant]
     Route: 065
     Dates: start: 20100713, end: 20100728
  14. EMEND [Concomitant]
     Route: 065
     Dates: start: 20100716, end: 20100718
  15. OMEPRAZOLE [Concomitant]
     Route: 065
     Dates: start: 20100713, end: 20110728
  16. TRAMADOL HCL [Concomitant]
     Route: 065
     Dates: start: 20100711, end: 20100717
  17. ALBUMIN (HUMAN) [Concomitant]
     Route: 065
  18. VINCRISTINE [Suspect]
     Indication: SARCOMA METASTATIC
     Dosage: 2 MG
     Route: 042
     Dates: start: 20100716
  19. BACTRIM [Concomitant]
     Route: 065
     Dates: start: 20100716, end: 20100719

REACTIONS (4)
  - ACUTE RESPIRATORY DISTRESS SYNDROME [None]
  - MUCOSAL INFLAMMATION [None]
  - FEBRILE BONE MARROW APLASIA [None]
  - ENCEPHALOPATHY [None]
